FAERS Safety Report 19019319 (Version 10)
Quarter: 2022Q2

REPORT INFORMATION
  Report Type: Report from Study
  Country: US (occurrence: US)
  Receive Date: 20210317
  Receipt Date: 20220603
  Transmission Date: 20220720
  Serious: Yes (Hospitalization)
  Sender: FDA-Public Use
  Company Number: US-NOVARTISPH-NVSC2021US060229

PATIENT
  Age: 32 Year
  Sex: Female
  Weight: 61.2 kg

DRUGS (5)
  1. ILARIS [Suspect]
     Active Substance: CANAKINUMAB
     Indication: Still^s disease
     Dosage: 245 MG, EVERY 4 WEEKS
     Route: 058
  2. ILARIS [Suspect]
     Active Substance: CANAKINUMAB
     Dosage: 247.5 MG, Q 4 WEEKS
     Route: 058
     Dates: start: 20210311
  3. ILARIS [Suspect]
     Active Substance: CANAKINUMAB
     Dosage: 300 MG, Q4W
     Route: 058
     Dates: start: 20200901
  4. ILARIS [Suspect]
     Active Substance: CANAKINUMAB
     Dosage: 300 MG/KG, QMO
     Route: 058
  5. PREDNISONE [Concomitant]
     Active Substance: PREDNISONE
     Indication: Still^s disease
     Dosage: UNK (15 TO 40)
     Route: 048
     Dates: start: 20210311

REACTIONS (7)
  - Condition aggravated [Unknown]
  - Still^s disease [Unknown]
  - Normal newborn [Unknown]
  - Maternal exposure during breast feeding [Unknown]
  - Maternal exposure during pregnancy [Unknown]
  - Drug ineffective [Recovered/Resolved]
  - Product prescribing error [Recovered/Resolved]

NARRATIVE: CASE EVENT DATE: 20210308
